FAERS Safety Report 13748950 (Version 1)
Quarter: 2017Q3

REPORT INFORMATION
  Report Type: Spontaneous
  Country: US (occurrence: US)
  Receive Date: 20170712
  Receipt Date: 20170712
  Transmission Date: 20171127
  Serious: Yes (Other)
  Sender: FDA-Public Use
  Company Number: None

PATIENT
  Age: 60 Year
  Sex: Female
  Weight: 63.45 kg

DRUGS (3)
  1. ESTRODIOL ANDMEDROXYPROGESTERONE [Suspect]
     Active Substance: ESTRADIOL\MEDROXYPROGESTERONE
     Indication: OSTEOPOROSIS
     Dosage: ?          OTHER STRENGTH:MG;QUANTITY:1 TABLET(S);?
     Route: 048
  2. CITRACAL [Concomitant]
     Active Substance: CALCIUM CITRATE
  3. PURE ENCAPSULATIONS-ULTRANUTRIENT [Concomitant]

REACTIONS (3)
  - Drug ineffective [None]
  - Laceration [None]
  - Anal pruritus [None]

NARRATIVE: CASE EVENT DATE: 20151115
